FAERS Safety Report 4633355-3 (Version None)
Quarter: 2005Q2

REPORT INFORMATION
  Report Type: 
  Country: None (occurrence: None)
  Receive Date: 20050408
  Receipt Date: 20050329
  Transmission Date: 20051028
  Serious: Yes (Disabling)
  Sender: FDA-Public Use
  Company Number: HQWYE003310MAR05

PATIENT
  Age: 49 Year
  Sex: Female

DRUGS (3)
  1. EFFEXOR XR [Suspect]
     Indication: ANXIETY
     Dosage: SEE IMAGE, ORAL
     Route: 048
     Dates: start: 20000101, end: 20050101
  2. EFFEXOR XR [Suspect]
     Indication: ANXIETY
     Dosage: SEE IMAGE, ORAL
     Route: 048
     Dates: start: 20050101, end: 20050201
  3. HYDROCHLOROTHIAZID (HYDROCHLOROTHIAZIDE) [Concomitant]
     Indication: DEPRESSION

REACTIONS (5)
  - ANXIETY [None]
  - ASTHENIA [None]
  - DRUG WITHDRAWAL SYNDROME [None]
  - HEADACHE [None]
  - IMPAIRED WORK ABILITY [None]
